FAERS Safety Report 6723931-6 (Version None)
Quarter: 2010Q2

REPORT INFORMATION
  Report Type: 
  Country: None (occurrence: None)
  Receive Date: 20100513
  Receipt Date: 20100506
  Transmission Date: 20101027
  Serious: Yes (Death, Other)
  Sender: FDA-Public Use
  Company Number: US-AMGEN-QUU406621

PATIENT
  Sex: Male
  Weight: 73.5 kg

DRUGS (1)
  1. NPLATE [Suspect]
     Indication: IDIOPATHIC THROMBOCYTOPENIC PURPURA
     Route: 058
     Dates: start: 20090728, end: 20090805

REACTIONS (2)
  - DRUG INEFFECTIVE [None]
  - PANCYTOPENIA [None]
